FAERS Safety Report 7020695-6 (Version None)
Quarter: 2010Q3

REPORT INFORMATION
  Report Type: 
  Country: None (occurrence: None)
  Receive Date: 20100929
  Receipt Date: 20100916
  Transmission Date: 20110219
  Serious: Yes (Hospitalization)
  Sender: FDA-Public Use
  Company Number: AU-US-EMD SERONO, INC.-7017271

PATIENT
  Age: 44 Year
  Sex: Female

DRUGS (4)
  1. INTERFERON BETA-1A [Suspect]
     Indication: MULTIPLE SCLEROSIS RELAPSE
     Route: 058
  2. METHYLPREDNISOLONE [Concomitant]
     Indication: CONDITION AGGRAVATED
  3. METFORMIN [Concomitant]
     Indication: TYPE 2 DIABETES MELLITUS
  4. GLICLAZIDE [Concomitant]
     Indication: TYPE 2 DIABETES MELLITUS

REACTIONS (2)
  - GLOMERULONEPHRITIS MINIMAL LESION [None]
  - NEPHROTIC SYNDROME [None]
